FAERS Safety Report 7108325-6 (Version None)
Quarter: 2010Q4

REPORT INFORMATION
  Report Type: 
  Country: None (occurrence: None)
  Receive Date: 20101117
  Receipt Date: 20101103
  Transmission Date: 20110411
  Serious: Yes (Hospitalization)
  Sender: FDA-Public Use
  Company Number: DE-GENENTECH-301440

PATIENT
  Age: 69 Year
  Sex: Male
  Weight: 78 kg

DRUGS (2)
  1. RITUXIMAB [Suspect]
     Indication: CHRONIC LYMPHOCYTIC LEUKAEMIA
     Dosage: 370 MG, UNK
     Route: 042
     Dates: start: 20090324, end: 20090922
  2. BENDAMUSTINE [Suspect]
     Indication: CHRONIC LYMPHOCYTIC LEUKAEMIA
     Dosage: 177 MG, UNK
     Route: 042
     Dates: start: 20090324, end: 20090923

REACTIONS (2)
  - BRONCHOSCOPY [None]
  - LUNG LOBECTOMY [None]
